FAERS Safety Report 5848377-4 (Version None)
Quarter: 2008Q3

REPORT INFORMATION
  Report Type: 
  Country: None (occurrence: None)
  Receive Date: 20080818
  Receipt Date: 20080813
  Transmission Date: 20090109
  Serious: Yes (Death)
  Sender: FDA-Public Use
  Company Number: US-CELGENEUS-163-21880-08061789

PATIENT
  Sex: Male

DRUGS (2)
  1. REVLIMID [Suspect]
     Indication: MULTIPLE MYELOMA
     Route: 048
     Dates: start: 20080207, end: 20080501
  2. REVLIMID [Suspect]
     Dosage: 25MG - 15MG - 25MG
     Route: 048
     Dates: start: 20070221, end: 20080201

REACTIONS (1)
  - MULTIPLE MYELOMA [None]
